FAERS Safety Report 4915251-7 (Version None)
Quarter: 2006Q1

REPORT INFORMATION
  Report Type: 
  Country: None (occurrence: None)
  Receive Date: 20060216
  Receipt Date: 20060216
  Transmission Date: 20060701
  Serious: Yes (Other)
  Sender: FDA-Public Use
  Company Number: None

PATIENT
  Sex: Female
  Weight: 52.1637 kg

DRUGS (2)
  1. LIPITOR [Suspect]
     Indication: BLOOD CHOLESTEROL INCREASED
     Dosage: 10 MG  1  A DAY  ORAL
     Route: 048
     Dates: start: 20030515, end: 20040130
  2. ZETIA [Suspect]
     Indication: BLOOD CHOLESTEROL INCREASED
     Dosage: 10 MG 1 A DAY ORAL
     Route: 048
     Dates: start: 20040517, end: 20040626

REACTIONS (3)
  - AMNESIA [None]
  - DISORIENTATION [None]
  - MEMORY IMPAIRMENT [None]
